FAERS Safety Report 23127416 (Version 1)
Quarter: 2023Q4

REPORT INFORMATION
  Report Type: Spontaneous
  Country: US (occurrence: US)
  Receive Date: 20231031
  Receipt Date: 20231031
  Transmission Date: 20240109
  Serious: No
  Sender: FDA-Public Use
  Company Number: US-ABBVIE-5474186

PATIENT

DRUGS (1)
  1. SKYRIZI [Suspect]
     Active Substance: RISANKIZUMAB-RZAA
     Indication: Product used for unknown indication
     Route: 058
     Dates: start: 2023

REACTIONS (6)
  - Headache [Unknown]
  - Swollen tongue [Unknown]
  - Oral discomfort [Unknown]
  - Paraesthesia oral [Unknown]
  - Paraesthesia [Unknown]
  - Lip swelling [Unknown]

NARRATIVE: CASE EVENT DATE: 20230101
